FAERS Safety Report 25548660 (Version 1)
Quarter: 2025Q3

REPORT INFORMATION
  Report Type: Spontaneous
  Country: TR (occurrence: TR)
  Receive Date: 20250714
  Receipt Date: 20250714
  Transmission Date: 20251020
  Serious: Yes (Hospitalization)
  Sender: UNICHEM
  Company Number: TR-UNICHEM LABORATORIES LIMITED-UNI-2025-TR-002686

PATIENT

DRUGS (2)
  1. ARIPIPRAZOLE [Suspect]
     Active Substance: ARIPIPRAZOLE
     Indication: Major depression
     Route: 065
  2. ESCITALOPRAM [Concomitant]
     Active Substance: ESCITALOPRAM OXALATE
     Indication: Major depression
     Route: 065

REACTIONS (1)
  - Pseudomyopia [Recovering/Resolving]
